FAERS Safety Report 10185544 (Version 1)
Quarter: 2014Q2

REPORT INFORMATION
  Report Type: Spontaneous
  Country: FR (occurrence: FR)
  Receive Date: 20140521
  Receipt Date: 20140521
  Transmission Date: 20141212
  Serious: Yes (Hospitalization)
  Sender: FDA-Public Use
  Company Number: FR-PFIZER INC-2014137911

PATIENT
  Age: 73 Year
  Sex: Male

DRUGS (2)
  1. CORDARONE [Suspect]
     Dosage: 200 MG, ONCE DAILY
     Route: 048
     Dates: start: 20110210, end: 20130830
  2. PRADAXA [Concomitant]
     Dosage: 110 MG, TWICE DAILY

REACTIONS (3)
  - Hyperthyroidism [Recovering/Resolving]
  - Arrhythmia [Recovering/Resolving]
  - Atrial flutter [Unknown]
